FAERS Safety Report 25927985 (Version 1)
Quarter: 2025Q4

REPORT INFORMATION
  Report Type: Spontaneous
  Country: MA (occurrence: MA)
  Receive Date: 20251016
  Receipt Date: 20251016
  Transmission Date: 20260117
  Serious: Yes (Death, Other)
  Sender: STRIDES
  Company Number: MA-STRIDES ARCOLAB LIMITED-2025SP012951

PATIENT
  Age: 18 Year
  Sex: Male

DRUGS (3)
  1. METHOTREXATE [Suspect]
     Active Substance: METHOTREXATE
     Indication: Burkitt^s lymphoma
     Dosage: CYM REGIMEN, HIGH DOSE
     Route: 065
  2. METHOTREXATE [Suspect]
     Active Substance: METHOTREXATE
     Dosage: HIGH DOSE
     Route: 065
  3. CYTARABINE [Suspect]
     Active Substance: CYTARABINE
     Indication: Burkitt^s lymphoma
     Dosage: CYM REGIMEN
     Route: 065

REACTIONS (2)
  - Toxicity to various agents [Fatal]
  - Non-Hodgkin^s lymphoma [Unknown]
